FAERS Safety Report 18612288 (Version 1)
Quarter: 2020Q4

REPORT INFORMATION
  Report Type: Spontaneous
  Country: ES (occurrence: ES)
  Receive Date: 20201214
  Receipt Date: 20201214
  Transmission Date: 20210114
  Serious: Yes (Hospitalization)
  Sender: FDA-Public Use
  Company Number: ES-MYLANLABS-2020M1101138

PATIENT
  Age: 83 Year
  Sex: Female

DRUGS (1)
  1. PAROXETINE. [Suspect]
     Active Substance: PAROXETINE
     Indication: DEPRESSION
     Dosage: 30 MG/24 H
     Route: 048
     Dates: start: 20201022

REACTIONS (4)
  - Malaise [Unknown]
  - Angina pectoris [Recovered/Resolved]
  - Sinus bradycardia [Unknown]
  - Asthenia [Unknown]

NARRATIVE: CASE EVENT DATE: 20201026
